FAERS Safety Report 6256857-5 (Version None)
Quarter: 2009Q3

REPORT INFORMATION
  Report Type: 
  Country: None (occurrence: None)
  Receive Date: 20090706
  Receipt Date: 20090626
  Transmission Date: 20100115
  Serious: Yes (Other)
  Sender: FDA-Public Use
  Company Number: PHHY2009DE07980

PATIENT
  Sex: Female

DRUGS (1)
  1. ZOMETA [Suspect]
     Indication: OSTEOLYSIS
     Dosage: 4 MG, ADMINISTRATION INTERVAL NOT SPECIFIED
     Route: 042
     Dates: start: 20020101, end: 20090201

REACTIONS (5)
  - BIOPSY [None]
  - OSTEONECROSIS [None]
  - OSTEOTOMY [None]
  - SEQUESTRECTOMY [None]
  - TOOTH EXTRACTION [None]
